FAERS Safety Report 12809950 (Version 1)
Quarter: 2016Q4

REPORT INFORMATION
  Report Type: Spontaneous
  Country: US (occurrence: US)
  Receive Date: 20161004
  Receipt Date: 20161004
  Transmission Date: 20170207
  Serious: Yes (Disabling)
  Sender: FDA-Public Use
  Company Number: None

PATIENT
  Age: 56 Year
  Sex: Female
  Weight: 90 kg

DRUGS (15)
  1. LEVOTHYROXINE. [Concomitant]
     Active Substance: LEVOTHYROXINE
  2. HAIR SKIN NAILS [Concomitant]
  3. BIOATIN [Concomitant]
  4. CALCITROL [Concomitant]
     Active Substance: CALCITRIOL
  5. VITAMIN B12 [Concomitant]
     Active Substance: CYANOCOBALAMIN
  6. VITAMIN D [Concomitant]
     Active Substance: CHOLECALCIFEROL
  7. CALCIUM [Concomitant]
     Active Substance: CALCIUM
  8. LEVOFLOXCIN [Suspect]
     Active Substance: LEVOFLOXACIN
     Indication: POST PROCEDURAL INFECTION
     Dosage: OTHER DAILY ORAL
     Route: 048
  9. BUPROPION. [Concomitant]
     Active Substance: BUPROPION
  10. COLLEGIAN [Concomitant]
  11. FISH OIL [Concomitant]
     Active Substance: FISH OIL
  12. FLEX A MIN [Concomitant]
  13. GABAPENTIN. [Concomitant]
     Active Substance: GABAPENTIN
  14. MULTI VITAMIN [Concomitant]
     Active Substance: VITAMINS
  15. VITAMIN C [Concomitant]
     Active Substance: ASCORBIC ACID

REACTIONS (4)
  - Amnesia [None]
  - Muscle spasms [None]
  - Neuropathy peripheral [None]
  - Coordination abnormal [None]

NARRATIVE: CASE EVENT DATE: 20120914
